FAERS Safety Report 19311978 (Version 2)
Quarter: 2021Q2

REPORT INFORMATION
  Report Type: Other
  Country: US (occurrence: US)
  Receive Date: 20210527
  Receipt Date: 20210608
  Transmission Date: 20210717
  Serious: Yes (Other)
  Sender: FDA-Public Use
  Company Number: US-ROCHE-2834599

PATIENT

DRUGS (1)
  1. TOCILIZUMAB. [Suspect]
     Active Substance: TOCILIZUMAB
     Indication: COVID-19
     Route: 065

REACTIONS (9)
  - Gastrointestinal perforation [Unknown]
  - Hepatotoxicity [Unknown]
  - Off label use [Unknown]
  - Blood triglycerides increased [Unknown]
  - Systemic candida [Unknown]
  - Neutropenia [Unknown]
  - Thrombocytopenia [Unknown]
  - Bacteraemia [Unknown]
  - Infection [Unknown]
